FAERS Safety Report 22083225 (Version 2)
Quarter: 2023Q2

REPORT INFORMATION
  Report Type: Spontaneous
  Country: BR (occurrence: None)
  Receive Date: 20230310
  Receipt Date: 20230609
  Transmission Date: 20230721
  Serious: Yes (Hospitalization, Other)
  Sender: FDA-Public Use
  Company Number: 2023A057142

PATIENT
  Age: 7 Year
  Sex: Male

DRUGS (4)
  1. SYMBICORT [Suspect]
     Active Substance: BUDESONIDE\FORMOTEROL FUMARATE DIHYDRATE
     Indication: Asthma
     Dosage: A JET IN THE MORNING AND A JET AT NIGHT
     Route: 055
  2. SYMBICORT [Suspect]
     Active Substance: BUDESONIDE\FORMOTEROL FUMARATE DIHYDRATE
     Indication: Rhinitis allergic
     Dosage: A JET IN THE MORNING AND A JET AT NIGHT
     Route: 055
  3. SYMBICORT [Suspect]
     Active Substance: BUDESONIDE\FORMOTEROL FUMARATE DIHYDRATE
     Indication: Asthma
     Dosage: A JET IN THE MORNING AND 2 JETS AT NIGHT
     Route: 055
  4. SYMBICORT [Suspect]
     Active Substance: BUDESONIDE\FORMOTEROL FUMARATE DIHYDRATE
     Indication: Rhinitis allergic
     Dosage: A JET IN THE MORNING AND 2 JETS AT NIGHT
     Route: 055

REACTIONS (9)
  - Asthmatic crisis [Not Recovered/Not Resolved]
  - Pleural effusion [Unknown]
  - Pyrexia [Unknown]
  - Pneumonia [Unknown]
  - Cough [Unknown]
  - Bronchospasm [Not Recovered/Not Resolved]
  - Medication error [Recovered/Resolved]
  - Off label use [Not Recovered/Not Resolved]
  - Device delivery system issue [Unknown]
